FAERS Safety Report 10269968 (Version 2)
Quarter: 2015Q4

REPORT INFORMATION
  Report Type: Report from Study
  Country: US (occurrence: US)
  Receive Date: 20140701
  Receipt Date: 20151110
  Transmission Date: 20160304
  Serious: Yes (Hospitalization, Other)
  Sender: FDA-Public Use
  Company Number: US-ROCHE-1378772

PATIENT
  Age: 77 Year
  Sex: Female

DRUGS (35)
  1. AVASTIN [Suspect]
     Active Substance: BEVACIZUMAB
     Indication: DIABETIC EYE DISEASE
     Route: 050
  2. AVASTIN [Suspect]
     Active Substance: BEVACIZUMAB
     Indication: RETINAL OEDEMA
  3. AVASTIN [Suspect]
     Active Substance: BEVACIZUMAB
     Indication: DIABETIC RETINOPATHY
  4. GLUCOPHAGE [Concomitant]
     Active Substance: METFORMIN HYDROCHLORIDE
     Route: 048
  5. HYDROCHLOROTHIAZIDE. [Concomitant]
     Active Substance: HYDROCHLOROTHIAZIDE
     Dosage: PRN
     Route: 048
  6. ZESTRIL [Concomitant]
     Active Substance: LISINOPRIL
     Route: 048
  7. VIGAMOX [Concomitant]
     Active Substance: MOXIFLOXACIN HYDROCHLORIDE
     Dosage: OU
     Route: 065
  8. FOLIC ACID. [Concomitant]
     Active Substance: FOLIC ACID
  9. LUCENTIS [Suspect]
     Active Substance: RANIBIZUMAB
     Indication: DIABETIC EYE DISEASE
     Route: 050
  10. LUCENTIS [Suspect]
     Active Substance: RANIBIZUMAB
     Indication: RETINAL OEDEMA
  11. BROMDAY [Concomitant]
     Active Substance: BROMFENAC SODIUM
     Dosage: OU
     Route: 047
  12. COMBIGAN [Concomitant]
     Active Substance: BRIMONIDINE TARTRATE\TIMOLOL MALEATE
     Dosage: OD
     Route: 065
  13. MOXEZA [Concomitant]
     Active Substance: MOXIFLOXACIN HYDROCHLORIDE
     Route: 047
  14. LUCENTIS [Suspect]
     Active Substance: RANIBIZUMAB
     Indication: DIABETIC RETINOPATHY
  15. LUMIGAN [Concomitant]
     Active Substance: BIMATOPROST
     Dosage: 0.01 %, AT BEDTIME  OD
     Route: 047
  16. VITAMIN B12 [Concomitant]
     Active Substance: CYANOCOBALAMIN
     Route: 065
  17. ASPIRIN. [Concomitant]
     Active Substance: ASPIRIN
     Route: 048
  18. AVASTIN [Suspect]
     Active Substance: BEVACIZUMAB
     Indication: DIABETIC RETINOPATHY
  19. NITROGLYCERIN. [Concomitant]
     Active Substance: NITROGLYCERIN
     Dosage: AS NEEDED
     Route: 048
  20. LIDOCAINE. [Concomitant]
     Active Substance: LIDOCAINE
     Indication: ANAESTHESIA
  21. BROMDAY [Concomitant]
     Active Substance: BROMFENAC SODIUM
     Dosage: OS
     Route: 047
  22. MYDRIACYL [Concomitant]
     Active Substance: TROPICAMIDE
     Indication: MYDRIASIS
     Dosage: 1%
     Route: 047
  23. BETADINE [Concomitant]
     Active Substance: POVIDONE-IODINE
     Dosage: 5% SOLUTION
     Route: 047
  24. HYDROCHLOROTHIAZIDE. [Concomitant]
     Active Substance: HYDROCHLOROTHIAZIDE
     Dosage: PRN
     Route: 065
  25. ALEVE [Concomitant]
     Active Substance: NAPROXEN SODIUM
     Route: 048
  26. DUREZOL [Concomitant]
     Active Substance: DIFLUPREDNATE
     Dosage: OS
     Route: 065
  27. LUCENTIS [Suspect]
     Active Substance: RANIBIZUMAB
     Indication: DIABETIC RETINAL OEDEMA
  28. ZOCOR [Concomitant]
     Active Substance: SIMVASTATIN
     Dosage: AT BEDTIME
     Route: 048
  29. ANTIVERT (UNITED STATES) [Concomitant]
     Route: 048
  30. PLAVIX [Concomitant]
     Active Substance: CLOPIDOGREL BISULFATE
     Route: 065
  31. LUCENTIS [Suspect]
     Active Substance: RANIBIZUMAB
     Indication: DIABETIC RETINOPATHY
     Route: 050
  32. AVASTIN [Suspect]
     Active Substance: BEVACIZUMAB
     Indication: DIABETIC RETINAL OEDEMA
  33. NEO-SYNEPHRINE [Concomitant]
     Active Substance: PHENYLEPHRINE HYDROCHLORIDE
     Indication: MYDRIASIS
     Dosage: 2.5%
     Route: 047
  34. GLUCOPHAGE [Concomitant]
     Active Substance: METFORMIN HYDROCHLORIDE
     Route: 048
  35. NITROGLYCERIN. [Concomitant]
     Active Substance: NITROGLYCERIN
     Dosage: 1/50 SUBLING PRN
     Route: 060

REACTIONS (17)
  - Cystoid macular oedema [Unknown]
  - Musculoskeletal disorder [Unknown]
  - Visual acuity reduced [Unknown]
  - Arthropathy [Unknown]
  - Conjunctivitis [Unknown]
  - Macular oedema [Unknown]
  - Visual impairment [Unknown]
  - Aneurysm [Unknown]
  - Arthralgia [Unknown]
  - Off label use [Unknown]
  - Ocular hyperaemia [Unknown]
  - Sinus congestion [Unknown]
  - Vision blurred [Unknown]
  - Visual acuity reduced transiently [Unknown]
  - Macular cyst [Unknown]
  - Abnormal sensation in eye [Unknown]
  - Transient ischaemic attack [Unknown]

NARRATIVE: CASE EVENT DATE: 20110720
